FAERS Safety Report 8062955-6 (Version None)
Quarter: 2012Q1

REPORT INFORMATION
  Report Type: 
  Country: None (occurrence: None)
  Receive Date: 20120123
  Receipt Date: 20120123
  Transmission Date: 20120608
  Serious: No
  Sender: FDA-Public Use
  Company Number: None

PATIENT
  Age: 42 Year
  Sex: Male
  Weight: 77.11 kg

DRUGS (1)
  1. ORAJEL [Suspect]
     Indication: GINGIVAL PAIN
     Dates: start: 20120120, end: 20120121

REACTIONS (4)
  - LOCAL SWELLING [None]
  - FEELING COLD [None]
  - HYPOAESTHESIA ORAL [None]
  - HYPOAESTHESIA [None]
